FAERS Safety Report 10041490 (Version 4)
Quarter: 2014Q2

REPORT INFORMATION
  Report Type: Report from Study
  Country: GB (occurrence: GB)
  Receive Date: 20140327
  Receipt Date: 20140613
  Transmission Date: 20141212
  Serious: Yes (Hospitalization)
  Sender: FDA-Public Use
  Company Number: GB-US-EMD SERONO, INC.-7264227

PATIENT
  Age: 36 Year
  Sex: Female

DRUGS (2)
  1. REBIF [Suspect]
     Indication: RELAPSING-REMITTING MULTIPLE SCLEROSIS
     Route: 058
     Dates: start: 20131115
  2. CERAZETTE                          /00754001/ [Concomitant]
     Indication: CONTRACEPTION

REACTIONS (3)
  - Breast cancer female [Not Recovered/Not Resolved]
  - Lethargy [Unknown]
  - Injection site erythema [Recovering/Resolving]
